FAERS Safety Report 9900702 (Version 1)
Quarter: 2014Q1

REPORT INFORMATION
  Report Type: Report from Study
  Country: US (occurrence: US)
  Receive Date: 20140217
  Receipt Date: 20140217
  Transmission Date: 20141002
  Serious: Yes (Other)
  Sender: FDA-Public Use
  Company Number: US-ROCHE-1346625

PATIENT
  Sex: Male

DRUGS (4)
  1. AVASTIN [Suspect]
     Indication: AGE-RELATED MACULAR DEGENERATION
     Dosage: LEFT EYE
     Route: 050
  2. LUTEIN [Concomitant]
  3. VITAMIN B12 [Concomitant]
  4. DEXAMETHASONE [Concomitant]

REACTIONS (4)
  - Macular oedema [Unknown]
  - Vision blurred [Unknown]
  - Metamorphopsia [Unknown]
  - Off label use [Unknown]
